FAERS Safety Report 15389763 (Version 2)
Quarter: 2018Q4

REPORT INFORMATION
  Report Type: Spontaneous
  Country: NL (occurrence: NL)
  Receive Date: 20180917
  Receipt Date: 20180920
  Transmission Date: 20190204
  Serious: Yes (Death)
  Sender: FDA-Public Use
  Company Number: NL-TEVA-2018-NL-954825

PATIENT
  Age: 30 Year
  Sex: Male
  Weight: 115 kg

DRUGS (2)
  1. CLOZAPINE TABLET, 100 MG (MILLIGRAM) [Suspect]
     Active Substance: CLOZAPINE
     Indication: OBSESSIVE-COMPULSIVE DISORDER
     Dosage: 100 MILLIGRAM DAILY; 1 DD 1
     Route: 065
     Dates: start: 20180622
  2. CLOZAPINE TABLET, 100 MG (MILLIGRAM) [Suspect]
     Active Substance: CLOZAPINE
     Indication: PSYCHOTIC DISORDER

REACTIONS (2)
  - Fatigue [Unknown]
  - Sudden cardiac death [Fatal]

NARRATIVE: CASE EVENT DATE: 20180701
